FAERS Safety Report 5344572-1 (Version None)
Quarter: 2007Q2

REPORT INFORMATION
  Report Type: 
  Country: None (occurrence: None)
  Receive Date: 20070604
  Receipt Date: 20070523
  Transmission Date: 20071010
  Serious: Yes (Death, Life-Threatening, Hospitalization)
  Sender: FDA-Public Use
  Company Number: US-GENENTECH-240605

PATIENT
  Sex: Female
  Weight: 79 kg

DRUGS (11)
  1. BEVACIZUMAB [Suspect]
     Indication: NON-SMALL CELL LUNG CANCER METASTATIC
     Dosage: 1185 MG, Q3W
     Route: 042
     Dates: start: 20070213
  2. PEMETREXED [Suspect]
     Indication: NON-SMALL CELL LUNG CANCER METASTATIC
     Dosage: 940 MG, Q3W
     Route: 042
     Dates: start: 20070213
  3. LOVENOX [Concomitant]
     Indication: PULMONARY EMBOLISM
     Dosage: 90 MG, QD
     Route: 058
     Dates: end: 20070423
  4. LOVENOX [Concomitant]
     Dosage: 80 MG, QD
     Route: 058
     Dates: start: 20070423
  5. LORTAB [Concomitant]
     Indication: DRUG USE FOR UNKNOWN INDICATION
     Dosage: 10 MG, TID
     Route: 048
  6. VITAMIN B-12 [Concomitant]
     Indication: DRUG USE FOR UNKNOWN INDICATION
     Dosage: 500 A?G, QD
  7. FOLATE [Concomitant]
     Indication: DRUG USE FOR UNKNOWN INDICATION
     Dosage: 1 MG, QD
     Route: 048
  8. M.V.I. [Concomitant]
     Indication: DRUG USE FOR UNKNOWN INDICATION
     Dosage: 1 TABLET, QD
     Route: 048
  9. OXYCODONE HCL [Concomitant]
     Indication: PAIN
  10. MORPHINE [Concomitant]
     Indication: PAIN
  11. TRIPLE MIX (UNK INGREDIENTS) [Concomitant]
     Indication: ORAL PAIN

REACTIONS (1)
  - RENAL FAILURE ACUTE [None]
